FAERS Safety Report 25956688 (Version 1)
Quarter: 2025Q4

REPORT INFORMATION
  Report Type: Spontaneous
  Country: US (occurrence: US)
  Receive Date: 20251024
  Receipt Date: 20251024
  Transmission Date: 20260118
  Serious: No
  Sender: HISAMITSU PHARMACEUTICAL CO., INC.
  Company Number: US-HISAMITSU PHARMACEUTICAL CO., INC.-2025-NOV-US000523

PATIENT
  Age: 45 Year
  Sex: Female
  Weight: 105.67 kg

DRUGS (1)
  1. ASENAPINE [Suspect]
     Active Substance: ASENAPINE
     Indication: Major depression
     Dosage: 10 MG, QHS
     Route: 060
     Dates: start: 202306

REACTIONS (1)
  - Glossodynia [Recovered/Resolved]
